FAERS Safety Report 13531737 (Version 1)
Quarter: 2017Q2

REPORT INFORMATION
  Report Type: Spontaneous
  Country: IT (occurrence: IT)
  Receive Date: 20170510
  Receipt Date: 20170510
  Transmission Date: 20170830
  Serious: Yes (Hospitalization, Other)
  Sender: FDA-Public Use
  Company Number: IT-TEVA-767333ACC

PATIENT
  Sex: Male

DRUGS (10)
  1. CLOPIDOGREL [Concomitant]
     Active Substance: CLOPIDOGREL BISULFATE
  2. PERMIXON [Concomitant]
     Active Substance: HERBALS\SAW PALMETTO
  3. VALSARTAN. [Concomitant]
     Active Substance: VALSARTAN
  4. SILODOSIN [Concomitant]
     Active Substance: SILODOSIN
  5. METFORMIN [Concomitant]
     Active Substance: METFORMIN HYDROCHLORIDE
  6. DOXAZOSIN [Concomitant]
     Active Substance: DOXAZOSIN\DOXAZOSIN MESYLATE
  7. CACIT [Concomitant]
     Active Substance: CALCIUM\VITAMIN D
  8. KCL-RETARD [Concomitant]
     Active Substance: POTASSIUM CHLORIDE
  9. PANTOPRAZOLE 40 MG [Suspect]
     Active Substance: PANTOPRAZOLE SODIUM
     Indication: GASTRITIS
     Dosage: 40 MILLIGRAM DAILY;
     Dates: start: 2015
  10. NEBIVOLOL. [Concomitant]
     Active Substance: NEBIVOLOL
     Route: 065

REACTIONS (4)
  - Cerebellar ischaemia [Recovered/Resolved with Sequelae]
  - Hypoparathyroidism [Recovered/Resolved]
  - Seizure [Recovered/Resolved]
  - Hypomagnesaemia [Recovered/Resolved]

NARRATIVE: CASE EVENT DATE: 201501
